FAERS Safety Report 9707188 (Version 1)
Quarter: 2013Q4

REPORT INFORMATION
  Report Type: Spontaneous
  Country: US (occurrence: None)
  Receive Date: 20131122
  Receipt Date: 20131122
  Transmission Date: 20140711
  Serious: Yes (Other)
  Sender: FDA-Public Use
  Company Number: None

PATIENT
  Age: 70 Year
  Sex: Male
  Weight: 81.65 kg

DRUGS (1)
  1. TUDORZA PRESSAIR [Suspect]
     Dosage: INHALE 1 PUFF TWICE A DAY
     Route: 055

REACTIONS (1)
  - Device malfunction [None]
